FAERS Safety Report 4330174-2 (Version None)
Quarter: 2004Q1

REPORT INFORMATION
  Report Type: 
  Country: None (occurrence: None)
  Receive Date: 20040329
  Receipt Date: 20040310
  Transmission Date: 20041129
  Serious: Yes (Disabling)
  Sender: FDA-Public Use
  Company Number: 2004CG00501

PATIENT
  Age: 16 Year
  Sex: Female

DRUGS (5)
  1. DIPRIVAN [Suspect]
     Indication: GENERAL ANAESTHESIA
     Dosage: 100 MG ONCE IV
     Route: 042
     Dates: start: 20010706, end: 20010706
  2. SOLU-MEDROL [Suspect]
     Dosage: 40 MG ONCE IV
     Route: 042
     Dates: start: 20010706, end: 20010706
  3. ACETAMINOPHEN W/ PROPOXYPHENE HCL [Suspect]
     Dosage: 2 G ONCE IV
     Route: 042
     Dates: start: 20010706, end: 20010706
  4. ALFENTANIL [Suspect]
     Dosage: 1.5 MG ONCE IV
     Route: 042
     Dates: start: 20010706, end: 20010706
  5. MIVACRON     GLAXO WELLCOME [Suspect]
     Indication: GENERAL ANAESTHESIA
     Dosage: 4 MG ONCE IV
     Route: 042
     Dates: start: 20010706, end: 20010706

REACTIONS (8)
  - BRADYCARDIA [None]
  - BRAIN OEDEMA [None]
  - BRONCHOSPASM [None]
  - COMA [None]
  - CYANOSIS [None]
  - OXYGEN SATURATION DECREASED [None]
  - SPEECH DISORDER [None]
  - VENTRICULAR FIBRILLATION [None]
